FAERS Safety Report 8333708-6 (Version None)
Quarter: 2012Q2

REPORT INFORMATION
  Report Type: 
  Country: None (occurrence: None)
  Receive Date: 20120503
  Receipt Date: 20120426
  Transmission Date: 20120825
  Serious: Yes (Hospitalization)
  Sender: FDA-Public Use
  Company Number: JP-B.I. PHARMACEUTICALS,INC./RIDGEFIELD-2012-BP-06361NB

PATIENT
  Sex: Male
  Weight: 74.5 kg

DRUGS (12)
  1. YOKU-KAN-SAN [Concomitant]
     Route: 048
  2. SLOW-K [Concomitant]
     Dosage: 1800 MG
     Route: 048
  3. TANATRIL [Concomitant]
     Dosage: 5 MG
     Route: 048
  4. CARVEDILOL [Concomitant]
     Dosage: 2.5 MG
     Route: 048
  5. ASPIRIN [Suspect]
     Dosage: 100 MG
     Route: 048
     Dates: end: 20120404
  6. DORNER [Suspect]
     Dosage: 60 MCG
     Route: 048
  7. PRADAXA [Suspect]
     Indication: ATRIAL FIBRILLATION
     Dosage: 220 MG
     Route: 048
     Dates: end: 20120404
  8. ANPLAG [Suspect]
     Dosage: 300 MG
     Route: 048
  9. REZALTAS [Concomitant]
     Route: 048
  10. EQUA [Concomitant]
     Dosage: 50 MG
     Route: 048
  11. ALINAMIN-F [Concomitant]
     Dosage: 50 MG
     Route: 048
  12. TRICHLORMETHIAZIDE [Concomitant]
     Dosage: 2 MG
     Route: 048

REACTIONS (5)
  - HAEMORRHAGE SUBCUTANEOUS [None]
  - RENAL IMPAIRMENT [None]
  - ACTIVATED PARTIAL THROMBOPLASTIN TIME PROLONGED [None]
  - DYSURIA [None]
  - PROTHROMBIN TIME PROLONGED [None]
